FAERS Safety Report 5241106-7 (Version None)
Quarter: 2007Q1

REPORT INFORMATION
  Report Type: 
  Country: None (occurrence: None)
  Receive Date: 20070220
  Receipt Date: 20070205
  Transmission Date: 20070707
  Serious: Yes (Death, Other)
  Sender: FDA-Public Use
  Company Number: FR-JNJFOC-20070203172

PATIENT
  Age: 31 Year
  Sex: Male

DRUGS (5)
  1. REMICADE [Suspect]
     Route: 042
  2. REMICADE [Suspect]
     Indication: CROHN'S DISEASE
     Route: 042
  3. 6-MP [Suspect]
     Indication: CROHN'S DISEASE
  4. MESALAMINE [Concomitant]
  5. STEROIDS [Concomitant]
     Indication: CROHN'S DISEASE

REACTIONS (2)
  - MULTI-ORGAN FAILURE [None]
  - T-CELL LYMPHOMA [None]
